FAERS Safety Report 6129784-1 (Version None)
Quarter: 2009Q1

REPORT INFORMATION
  Report Type: 
  Country: None (occurrence: None)
  Receive Date: 20090324
  Receipt Date: 20090311
  Transmission Date: 20090719
  Serious: Yes (Life-Threatening, Other)
  Sender: FDA-Public Use
  Company Number: JP-SANOFI-SYNTHELABO-A01200902913

PATIENT
  Sex: Female

DRUGS (4)
  1. LEVOFOLINATE [Concomitant]
     Dosage: UNK
     Route: 042
  2. FLUOROURACIL [Concomitant]
     Dosage: BIV/DR
  3. AVASTIN [Concomitant]
     Dosage: UNK
     Route: 042
  4. ELPLAT [Suspect]
     Dosage: UNK
     Route: 042

REACTIONS (3)
  - DISSEMINATED INTRAVASCULAR COAGULATION [None]
  - RENAL IMPAIRMENT [None]
  - WHITE BLOOD CELL COUNT INCREASED [None]
